FAERS Safety Report 11598356 (Version 2)
Quarter: 2015Q4

REPORT INFORMATION
  Report Type: Spontaneous
  Country: IR (occurrence: IR)
  Receive Date: 20151006
  Receipt Date: 20151007
  Transmission Date: 20160304
  Serious: Yes (Death, Hospitalization, Congenital Anomaly)
  Sender: FDA-Public Use
  Company Number: PHHY2015IR119907

PATIENT
  Sex: Male
  Weight: 3.7 kg

DRUGS (14)
  1. OCTREOTIDE. [Suspect]
     Active Substance: OCTREOTIDE
     Indication: HYPOGLYCAEMIA NEONATAL
     Dosage: 40 UG/KG, Q12H
     Route: 065
  2. DIAZOXIDE [Suspect]
     Active Substance: DIAZOXIDE
     Indication: HYPOGLYCAEMIA NEONATAL
     Dosage: 50 MG/KG, Q6H
     Route: 065
  3. GLUCOSE [Suspect]
     Active Substance: DEXTROSE
     Dosage: 23 MG/KG, QD
     Route: 041
  4. OCTREOTIDE. [Suspect]
     Active Substance: OCTREOTIDE
     Indication: HYPERINSULINAEMIA
     Dosage: 40 UG/KG, Q12H
     Route: 065
  5. DIAZOXIDE [Suspect]
     Active Substance: DIAZOXIDE
     Dosage: 25 MG/KG, QD
     Route: 065
  6. GLUCOSE [Suspect]
     Active Substance: DEXTROSE
     Indication: HYPERINSULINAEMIA
     Dosage: 32 MG/KG, QD
     Route: 041
  7. HYDROCORTISONE. [Suspect]
     Active Substance: HYDROCORTISONE
     Indication: HYPOGLYCAEMIA
     Dosage: 5.4 MG, Q6H
     Route: 042
  8. HYDROCORTISONE. [Suspect]
     Active Substance: HYDROCORTISONE
     Dosage: 4.5 MG, Q6H
     Route: 042
  9. GLUCOSE [Suspect]
     Active Substance: DEXTROSE
     Indication: HYPOGLYCAEMIA NEONATAL
     Dosage: 18 MG/KG, QD
     Route: 041
  10. OCTREOTIDE. [Suspect]
     Active Substance: OCTREOTIDE
     Dosage: 90 UG/KG, Q12H
     Route: 065
  11. HYDROCORTISONE. [Suspect]
     Active Substance: HYDROCORTISONE
     Dosage: 3 MG, QD
     Route: 042
  12. GLUCOSE [Suspect]
     Active Substance: DEXTROSE
     Dosage: 35 MG/KG, QD
     Route: 041
  13. HYDROCORTISONE. [Suspect]
     Active Substance: HYDROCORTISONE
     Dosage: 3 MG, Q8H
     Route: 042
  14. DIAZOXIDE [Suspect]
     Active Substance: DIAZOXIDE
     Indication: HYPERINSULINAEMIA
     Dosage: 20 MG/KG, Q8H
     Route: 065

REACTIONS (4)
  - Hypoglycaemia neonatal [Fatal]
  - Cardiac failure [Fatal]
  - Product use issue [Unknown]
  - Drug ineffective [Unknown]
